FAERS Safety Report 11048470 (Version 1)
Quarter: 2015Q2

REPORT INFORMATION
  Report Type: Spontaneous
  Country: US (occurrence: US)
  Receive Date: 20150420
  Receipt Date: 20150420
  Transmission Date: 20150821
  Serious: No
  Sender: FDA-Public Use
  Company Number: US-BIOGENIDEC-2015BI050022

PATIENT
  Age: 56 Year
  Sex: Female

DRUGS (20)
  1. ALBUTEROL SULFATE. [Concomitant]
     Active Substance: ALBUTEROL SULFATE
  2. BETASERON [Concomitant]
     Active Substance: INTERFERON BETA-1B
  3. REQUIP [Concomitant]
     Active Substance: ROPINIROLE HYDROCHLORIDE
  4. OXYCODONE HCL [Concomitant]
     Active Substance: OXYCODONE HYDROCHLORIDE
  5. OXYCONTIN [Concomitant]
     Active Substance: OXYCODONE HYDROCHLORIDE
  6. PREDNISONE. [Concomitant]
     Active Substance: PREDNISONE
  7. VITAMIN B12 [Concomitant]
     Active Substance: CYANOCOBALAMIN
  8. CYMBALTA [Concomitant]
     Active Substance: DULOXETINE HYDROCHLORIDE
  9. ASPIRIN. [Concomitant]
     Active Substance: ASPIRIN
  10. VITAMIN D [Concomitant]
     Active Substance: CHOLECALCIFEROL
  11. LASIX [Concomitant]
     Active Substance: FUROSEMIDE
  12. TOPROL XL [Concomitant]
     Active Substance: METOPROLOL SUCCINATE
  13. BACLOFEN. [Concomitant]
     Active Substance: BACLOFEN
  14. PLAVIX [Concomitant]
     Active Substance: CLOPIDOGREL BISULFATE
  15. SIMVASTATIN. [Concomitant]
     Active Substance: SIMVASTATIN
  16. TECFIDERA [Suspect]
     Active Substance: DIMETHYL FUMARATE
     Indication: MULTIPLE SCLEROSIS
     Route: 048
     Dates: start: 20130823
  17. GABAPENTIN. [Concomitant]
     Active Substance: GABAPENTIN
  18. LEVEMIR [Concomitant]
     Active Substance: INSULIN DETEMIR
  19. OXCARBAZEPINE. [Concomitant]
     Active Substance: OXCARBAZEPINE
  20. GLUCOTROL [Concomitant]
     Active Substance: GLIPIZIDE

REACTIONS (2)
  - Cardiac disorder [Unknown]
  - Gastric disorder [Unknown]
